FAERS Safety Report 7215152-8 (Version None)
Quarter: 2011Q1

REPORT INFORMATION
  Report Type: 
  Country: None (occurrence: None)
  Receive Date: 20110107
  Receipt Date: 20101018
  Transmission Date: 20110831
  Serious: No
  Sender: FDA-Public Use
  Company Number: A0881182A

PATIENT
  Sex: Female

DRUGS (1)
  1. LOVAZA [Suspect]
     Route: 065

REACTIONS (3)
  - DYSGEUSIA [None]
  - INCORRECT PRODUCT STORAGE [None]
  - GASTRIC DISORDER [None]
